FAERS Safety Report 7220089-4 (Version None)
Quarter: 2011Q1

REPORT INFORMATION
  Report Type: 
  Country: None (occurrence: None)
  Receive Date: 20110111
  Receipt Date: 20110104
  Transmission Date: 20110831
  Serious: Yes (Other)
  Sender: FDA-Public Use
  Company Number: B0486944A

PATIENT
  Age: 49 Year
  Sex: Male

DRUGS (2)
  1. AUGMENTIN '125' [Suspect]
     Route: 042
  2. LEVOFLOXACIN [Suspect]
     Route: 042

REACTIONS (6)
  - RASH PUSTULAR [None]
  - ACUTE GENERALISED EXANTHEMATOUS PUSTULOSIS [None]
  - TOXIC EPIDERMAL NECROLYSIS [None]
  - ERYTHEMA [None]
  - BLISTER [None]
  - NIKOLSKY'S SIGN [None]
